FAERS Safety Report 7367269-5 (Version None)
Quarter: 2011Q1

REPORT INFORMATION
  Report Type: 
  Country: None (occurrence: None)
  Receive Date: 20110322
  Receipt Date: 20110310
  Transmission Date: 20110831
  Serious: Yes (Hospitalization, Disabling, Other)
  Sender: FDA-Public Use
  Company Number: US-CELGENEUS-163-21880-10110060

PATIENT
  Sex: Male

DRUGS (7)
  1. ASPIRIN [Concomitant]
     Dosage: 81 MILLIGRAM
     Route: 065
  2. HYDREA [Concomitant]
     Indication: MYELOFIBROSIS
     Dosage: 500 MILLIGRAM
     Route: 048
     Dates: start: 20040721
  3. HYDREA [Concomitant]
     Dosage: 1000 MILLIGRAM
     Route: 048
  4. VITAMIN B-12 [Concomitant]
     Dosage: 500 MICROGRAM
     Route: 065
  5. PREDNISONE [Concomitant]
     Indication: MYELOFIBROSIS
     Dosage: 10 MILLIGRAM
     Route: 048
     Dates: start: 20101006
  6. REVLIMID [Suspect]
     Indication: MYELOFIBROSIS
     Dosage: 10 MILLIGRAM
     Route: 048
     Dates: start: 20101004, end: 20101112
  7. NEXIUM [Concomitant]
     Dosage: 20 MILLIGRAM
     Route: 065

REACTIONS (4)
  - BACK PAIN [None]
  - GANGRENE [None]
  - ARTERIAL THROMBOSIS LIMB [None]
  - DRY MOUTH [None]
